FAERS Safety Report 5020191-1 (Version None)
Quarter: 2006Q2

REPORT INFORMATION
  Report Type: 
  Country: None (occurrence: None)
  Receive Date: 20060602
  Receipt Date: 20060512
  Transmission Date: 20061013
  Serious: Yes (Other)
  Sender: FDA-Public Use
  Company Number: GR200604004705

PATIENT
  Age: 19 Year
  Sex: Female

DRUGS (2)
  1. FLUOXETINE HYDROCHLORIDE (FLUOXETINE HYDROCHLORIDE UNKNOWN FROMULATION [Suspect]
     Indication: DEPRESSION
     Dosage: 20 MG, DAILY (1/D), UNK
     Dates: start: 19990601
  2. BUSPIRONE HCL [Concomitant]

REACTIONS (2)
  - BREAST CANCER IN SITU [None]
  - FIBROADENOMA OF BREAST [None]
